FAERS Safety Report 6565926-1 (Version None)
Quarter: 2010Q1

REPORT INFORMATION
  Report Type: 
  Country: None (occurrence: None)
  Receive Date: 20100129
  Receipt Date: 20100129
  Transmission Date: 20100710
  Serious: Yes (Other)
  Sender: FDA-Public Use
  Company Number: None

PATIENT
  Age: 11 Year
  Sex: Female
  Weight: 71 kg

DRUGS (1)
  1. LEVETIRACETAM [Suspect]
     Indication: EPILEPSY
     Dosage: 1500MG TWICE DAILY PO
     Route: 048
     Dates: start: 20090401, end: 20090520

REACTIONS (3)
  - CONDITION AGGRAVATED [None]
  - CONVULSION [None]
  - UNEVALUABLE EVENT [None]
